FAERS Safety Report 6465910-2 (Version None)
Quarter: 2009Q4

REPORT INFORMATION
  Report Type: 
  Country: None (occurrence: None)
  Receive Date: 20091202
  Receipt Date: 20091120
  Transmission Date: 20100525
  Serious: Yes (Hospitalization)
  Sender: FDA-Public Use
  Company Number: US-BIOGENIDEC-2009BI033356

PATIENT
  Age: 45 Year
  Sex: Female

DRUGS (1)
  1. TYSABRI [Suspect]
     Indication: MULTIPLE SCLEROSIS
     Route: 042
     Dates: start: 20070607

REACTIONS (5)
  - ABASIA [None]
  - CELLULITIS [None]
  - ERYTHEMA [None]
  - MEMORY IMPAIRMENT [None]
  - POOR VENOUS ACCESS [None]
